FAERS Safety Report 21942531 (Version 1)
Quarter: 2023Q1

REPORT INFORMATION
  Report Type: Spontaneous
  Country: GB (occurrence: GB)
  Receive Date: 20230202
  Receipt Date: 20230202
  Transmission Date: 20230417
  Serious: No
  Sender: FDA-Public Use
  Company Number: GB-EXELIXIS-CABO-22058195

PATIENT
  Age: 55 Year
  Sex: Female

DRUGS (2)
  1. CABOMETYX [Suspect]
     Active Substance: CABOZANTINIB S-MALATE
     Indication: Clear cell renal cell carcinoma
     Dosage: UNK
     Dates: start: 20211104
  2. NIVOLUMAB [Suspect]
     Active Substance: NIVOLUMAB
     Indication: Clear cell renal cell carcinoma
     Dosage: UNK
     Dates: start: 20211104

REACTIONS (6)
  - Immune-mediated hypothyroidism [Unknown]
  - Synovitis [Unknown]
  - Alanine aminotransferase increased [Unknown]
  - Mucosal inflammation [Unknown]
  - Hypertension [Unknown]
  - Hypercholesterolaemia [Unknown]

NARRATIVE: CASE EVENT DATE: 20211202
